FAERS Safety Report 7626949-4 (Version None)
Quarter: 2011Q3

REPORT INFORMATION
  Report Type: 
  Country: None (occurrence: None)
  Receive Date: 20110721
  Receipt Date: 20110719
  Transmission Date: 20111222
  Serious: Yes (Death)
  Sender: FDA-Public Use
  Company Number: US-PFIZER INC-2011164265

PATIENT
  Sex: Male

DRUGS (1)
  1. TIKOSYN [Suspect]
     Indication: HYPERTENSION
     Dosage: 0.25 MG, 2X/DAY
     Route: 048
     Dates: start: 20100226, end: 20110201

REACTIONS (1)
  - DEATH [None]
